FAERS Safety Report 24632733 (Version 1)
Quarter: 2024Q4

REPORT INFORMATION
  Report Type: Spontaneous
  Country: US (occurrence: US)
  Receive Date: 20241118
  Receipt Date: 20241118
  Transmission Date: 20250115
  Serious: No
  Sender: PERRIGO
  Company Number: US-PERRIGO-24US005288

PATIENT
  Sex: Female

DRUGS (1)
  1. OPILL [Suspect]
     Active Substance: NORGESTREL
     Indication: Product used for unknown indication
     Dosage: UNKNOWN, UNKNOWN
     Route: 048

REACTIONS (6)
  - Thinking abnormal [Unknown]
  - Anger [Unknown]
  - Mouth ulceration [Unknown]
  - Menstrual clots [Unknown]
  - Heavy menstrual bleeding [Unknown]
  - Headache [Unknown]
